FAERS Safety Report 8451012-2 (Version None)
Quarter: 2012Q2

REPORT INFORMATION
  Report Type: 
  Country: None (occurrence: None)
  Receive Date: 20120620
  Receipt Date: 20120615
  Transmission Date: 20120825
  Serious: Yes (Other)
  Sender: FDA-Public Use
  Company Number: GB-ROCHE-1073045

PATIENT
  Sex: Female

DRUGS (1)
  1. XENICAL [Suspect]
     Indication: OVERWEIGHT
     Route: 048
     Dates: end: 20120201

REACTIONS (1)
  - VASCULITIS [None]
